FAERS Safety Report 6907717-5 (Version None)
Quarter: 2010Q3

REPORT INFORMATION
  Report Type: 
  Country: None (occurrence: None)
  Receive Date: 20100803
  Receipt Date: 20090831
  Transmission Date: 20110219
  Serious: Yes (Hospitalization)
  Sender: FDA-Public Use
  Company Number: DSU-2009-01835

PATIENT
  Age: 55 Year
  Sex: Female
  Weight: 56.6996 kg

DRUGS (3)
  1. BENICAR HCT [Suspect]
     Indication: HYPERTENSION
     Dosage: 40/25MG (QD), PER ORAL; 40/25MG (QD), PER ORAL; 40/25MG (QD), PER ORAL
     Route: 048
     Dates: start: 20080722, end: 20090730
  2. BENICAR HCT [Suspect]
     Indication: HYPERTENSION
     Dosage: 40/25MG (QD), PER ORAL; 40/25MG (QD), PER ORAL; 40/25MG (QD), PER ORAL
     Route: 048
     Dates: start: 20090801, end: 20090801
  3. BENICAR HCT [Suspect]
     Indication: HYPERTENSION
     Dosage: 40/25MG (QD), PER ORAL; 40/25MG (QD), PER ORAL; 40/25MG (QD), PER ORAL
     Route: 048
     Dates: start: 20090828, end: 20090828

REACTIONS (5)
  - DEHYDRATION [None]
  - DIARRHOEA [None]
  - LIPASE INCREASED [None]
  - VOMITING [None]
  - WEIGHT DECREASED [None]
